FAERS Safety Report 6759443-3 (Version None)
Quarter: 2010Q2

REPORT INFORMATION
  Report Type: 
  Country: None (occurrence: None)
  Receive Date: 20100603
  Receipt Date: 20100519
  Transmission Date: 20101027
  Serious: Yes (Hospitalization)
  Sender: FDA-Public Use
  Company Number: ABCAD-10-0056

PATIENT
  Age: 60 Year
  Sex: Female

DRUGS (6)
  1. ABRAXANE [Suspect]
     Indication: METASTATIC MALIGNANT MELANOMA
     Dosage: (200 MG/M2, EVERY 21 DAYS), INTRAVENOUS
     Route: 042
     Dates: start: 20091021
  2. CARBOPLATIN [Suspect]
     Indication: METASTATIC MALIGNANT MELANOMA
     Dosage: (AUC 6 EVERY 21 DAYS), INTRAVENOUS
     Route: 042
     Dates: start: 20091021
  3. MP 470 HYDROCHLORIDE [Suspect]
     Indication: METASTATIC MALIGNANT MELANOMA
     Dosage: (800 MG), ORAL
     Route: 048
     Dates: start: 20091022
  4. SYNTHROID [Concomitant]
  5. ESTRADIOL [Concomitant]
  6. ALPHA LIPOIC ACID (THIOCTIC ACID) [Concomitant]

REACTIONS (9)
  - BLOOD SODIUM DECREASED [None]
  - CELLULITIS STAPHYLOCOCCAL [None]
  - CELLULITIS STREPTOCOCCAL [None]
  - HAEMATOCRIT DECREASED [None]
  - HAEMOGLOBIN DECREASED [None]
  - HERPES SIMPLEX [None]
  - HERPES ZOSTER [None]
  - NEUTROPENIA [None]
  - PLATELET COUNT DECREASED [None]
